FAERS Safety Report 6268230-4 (Version None)
Quarter: 2009Q3

REPORT INFORMATION
  Report Type: 
  Country: None (occurrence: None)
  Receive Date: 20090714
  Receipt Date: 20090714
  Transmission Date: 20100115
  Serious: Yes (Other)
  Sender: FDA-Public Use
  Company Number: None

PATIENT
  Age: 79 Year
  Sex: Male
  Weight: 74.8435 kg

DRUGS (2)
  1. AUGMENTIN [Suspect]
     Indication: EAR INFECTION
     Dosage: 2000MG EACH MORNING PO  2000MG EACH NIGHT PO
     Route: 048
     Dates: start: 20090701, end: 20090708
  2. AUGMENTIN [Suspect]
     Indication: SINUSITIS
     Dosage: 2000MG EACH MORNING PO  2000MG EACH NIGHT PO
     Route: 048
     Dates: start: 20090701, end: 20090708

REACTIONS (5)
  - ABDOMINAL PAIN UPPER [None]
  - DIARRHOEA [None]
  - FLATULENCE [None]
  - NAUSEA [None]
  - PRURITUS [None]
